FAERS Safety Report 9913085 (Version 1)
Quarter: 2014Q1

REPORT INFORMATION
  Report Type: Report from Study
  Country: US (occurrence: US)
  Receive Date: 20140220
  Receipt Date: 20140220
  Transmission Date: 20141002
  Serious: Yes (Other)
  Sender: FDA-Public Use
  Company Number: US-ROCHE-1322868

PATIENT
  Age: 52 Year
  Sex: Female
  Weight: 63.5 kg

DRUGS (22)
  1. AVASTIN [Suspect]
     Indication: NON-SMALL CELL LUNG CANCER
     Route: 042
     Dates: start: 20080507
  2. TARCEVA [Suspect]
     Indication: NON-SMALL CELL LUNG CANCER
     Route: 065
     Dates: start: 200811, end: 200908
  3. TARCEVA [Suspect]
     Route: 065
     Dates: start: 200910
  4. TARCEVA [Suspect]
     Route: 065
     Dates: start: 20100128
  5. TARCEVA [Suspect]
     Dosage: 75MG AND 100MG ALTERNATING EVERY OTHER DAY
     Route: 065
     Dates: start: 20100328
  6. TARCEVA [Suspect]
     Route: 065
     Dates: start: 20100622
  7. TARCEVA [Suspect]
     Dosage: ONCE DAILY
     Route: 065
     Dates: start: 201008
  8. CARBOPLATIN [Concomitant]
  9. TAXOL [Concomitant]
     Dosage: INITIAL DOSE REDUCED BY 25% ON-JUL-2008
     Route: 065
  10. CLINDAMYCIN [Concomitant]
     Route: 065
  11. IBUPROFEN [Concomitant]
     Indication: PAIN
  12. TYLENOL [Concomitant]
     Indication: PAIN
  13. OXYCODONE [Concomitant]
  14. RECLAST [Concomitant]
     Dosage: ANNUALLY
     Route: 065
  15. MACROBID [Concomitant]
     Dosage: LONG TERM PROPHYLAXIS M-W-F
     Route: 065
  16. ADVAIR [Concomitant]
  17. SPIRIVA [Concomitant]
  18. ALBUTEROL [Concomitant]
     Dosage: PRN
     Route: 065
  19. MEGACE ES [Concomitant]
     Dosage: HOLD
     Route: 048
  20. PRILOSEC [Concomitant]
     Route: 065
  21. XANAX [Concomitant]
     Dosage: EVERY 8 HOURS PRN
     Route: 048
  22. AZITHROMYCIN [Concomitant]

REACTIONS (52)
  - Malignant neoplasm of spinal cord [Unknown]
  - Brain neoplasm malignant [Unknown]
  - Disease progression [Unknown]
  - Basal cell carcinoma [Unknown]
  - Neutropenia [Unknown]
  - Hyperbilirubinaemia [Unknown]
  - Rhinitis [Unknown]
  - Decreased appetite [Recovering/Resolving]
  - Proteinuria [Recovered/Resolved]
  - Urinary tract infection [Recovered/Resolved]
  - Magnesium metabolism disorder [Unknown]
  - Diarrhoea [Recovering/Resolving]
  - Osteoporosis [Unknown]
  - Malaise [Unknown]
  - Nausea [Unknown]
  - Fall [Unknown]
  - Iron deficiency anaemia [Unknown]
  - Bronchitis [Recovered/Resolved]
  - Paronychia [Recovered/Resolved]
  - Liver function test abnormal [Unknown]
  - Dehydration [Unknown]
  - Pleuritic pain [Unknown]
  - Mouth ulceration [Unknown]
  - Dermatitis acneiform [Unknown]
  - Vertigo [Unknown]
  - Alopecia [Unknown]
  - Hypercalcaemia [Recovered/Resolved]
  - Influenza like illness [Unknown]
  - Asthma [Unknown]
  - Haemoptysis [Unknown]
  - Weight decreased [Unknown]
  - Neuropathy peripheral [Recovered/Resolved]
  - Asthenia [Unknown]
  - Neck pain [Unknown]
  - Cough [Unknown]
  - Dysuria [Unknown]
  - Arthritis [Unknown]
  - Back pain [Unknown]
  - Haematuria [Unknown]
  - Urine leukocyte esterase positive [Unknown]
  - Gastritis [Unknown]
  - Muscle spasms [Unknown]
  - Osteopenia [Unknown]
  - Nail disorder [Unknown]
  - Skin ulcer [Unknown]
  - Neurological symptom [Unknown]
  - Joint injury [Unknown]
  - Rash [Unknown]
  - Dry skin [Unknown]
  - Gastrointestinal disorder [Recovering/Resolving]
  - Fatigue [Unknown]
  - Post-traumatic neck syndrome [Unknown]
